FAERS Safety Report 7571378-5 (Version None)
Quarter: 2011Q2

REPORT INFORMATION
  Report Type: 
  Country: None (occurrence: None)
  Receive Date: 20110624
  Receipt Date: 20110621
  Transmission Date: 20111010
  Serious: Yes (Other)
  Sender: FDA-Public Use
  Company Number: US-PFIZER INC-2011137954

PATIENT
  Sex: Male
  Weight: 124 kg

DRUGS (9)
  1. METOPROLOL [Concomitant]
     Indication: HYPERTENSION
     Dosage: UNK
  2. ACETYLSALICYLIC ACID [Concomitant]
     Indication: ANTICOAGULANT THERAPY
     Dosage: 81 MG, 1X/DAY
  3. GLYBURIDE [Concomitant]
     Indication: DIABETES MELLITUS
     Dosage: UNK
  4. LIPITOR [Suspect]
     Indication: BLOOD CHOLESTEROL INCREASED
     Dosage: 10 MG, 1X/DAY
     Route: 048
     Dates: start: 20050201
  5. ONGLYZA [Concomitant]
     Indication: DIABETES MELLITUS
     Dosage: UNK
  6. LIPITOR [Suspect]
     Indication: CARDIAC DISORDER
     Dosage: 80 MG, 1X/DAY
     Dates: start: 20060101
  7. METFORMIN [Concomitant]
     Indication: DIABETES MELLITUS
     Dosage: UNK
  8. ZETIA [Concomitant]
     Indication: BLOOD CHOLESTEROL INCREASED
     Dosage: UNK
  9. METOPROLOL [Concomitant]
     Indication: CARDIAC DISORDER

REACTIONS (1)
  - CHOKING [None]
